FAERS Safety Report 24228795 (Version 4)
Quarter: 2025Q2

REPORT INFORMATION
  Report Type: Report from Study
  Country: US (occurrence: US)
  Receive Date: 20240820
  Receipt Date: 20250618
  Transmission Date: 20250717
  Serious: Yes (Hospitalization)
  Sender: PFIZER
  Company Number: US-PFIZER INC-202400238466

PATIENT
  Age: 69 Year
  Sex: Female
  Weight: 65.1 kg

DRUGS (2)
  1. TUKYSA [Suspect]
     Active Substance: TUCATINIB
     Indication: Breast cancer female
     Dosage: 300MG BY MOUTH TWICE DAILY
     Route: 048
     Dates: start: 20240713
  2. TUKYSA [Suspect]
     Active Substance: TUCATINIB
     Dosage: TAKE 2 150 MG TABLETS EVERY 12 HOURS
     Dates: start: 20240713

REACTIONS (4)
  - Dyspnoea [Unknown]
  - Cardiac disorder [Unknown]
  - Fall [Unknown]
  - Skin laceration [Unknown]
